FAERS Safety Report 7037284-X (Version None)
Quarter: 2010Q4

REPORT INFORMATION
  Report Type: 
  Country: None (occurrence: None)
  Receive Date: 20101011
  Receipt Date: 20100928
  Transmission Date: 20110411
  Serious: Yes (Hospitalization, Other)
  Sender: FDA-Public Use
  Company Number: US-ELI_LILLY_AND_COMPANY-US201008002655

PATIENT
  Sex: Male

DRUGS (1)
  1. FORTEO [Suspect]
     Indication: BACK DISORDER
     Dosage: UNK, DAILY (1/D)

REACTIONS (6)
  - ABDOMINAL DISCOMFORT [None]
  - MALAISE [None]
  - NIPPLE PAIN [None]
  - OFF LABEL USE [None]
  - PELVIC FRACTURE [None]
  - WEIGHT INCREASED [None]
